FAERS Safety Report 25663256 (Version 2)
Quarter: 2025Q3

REPORT INFORMATION
  Report Type: Report from Study
  Country: CA (occurrence: CA)
  Receive Date: 20250811
  Receipt Date: 20250820
  Transmission Date: 20251021
  Serious: Yes (Hospitalization, Other)
  Sender: TAKEDA
  Company Number: CA-TAKEDA-2025TUS042690

PATIENT
  Age: 70 Year
  Sex: Female

DRUGS (11)
  1. VEDOLIZUMAB [Suspect]
     Active Substance: VEDOLIZUMAB
     Indication: Colitis ulcerative
  2. VEDOLIZUMAB [Suspect]
     Active Substance: VEDOLIZUMAB
  3. VEDOLIZUMAB [Suspect]
     Active Substance: VEDOLIZUMAB
     Dosage: 300 MILLIGRAM, Q4WEEKS
     Dates: start: 20250711, end: 20250711
  4. MESALAMINE [Concomitant]
     Active Substance: MESALAMINE
  5. INFLECTRA [Concomitant]
     Active Substance: INFLIXIMAB-DYYB
  6. Cortiment [Concomitant]
  7. SYNTHROID [Concomitant]
     Active Substance: LEVOTHYROXINE SODIUM
  8. PREDNISONE [Concomitant]
     Active Substance: PREDNISONE
  9. ALMOTRIPTAN [Concomitant]
     Active Substance: ALMOTRIPTAN
  10. ZOPICLONE [Concomitant]
     Active Substance: ZOPICLONE
  11. ATIVAN [Concomitant]
     Active Substance: LORAZEPAM

REACTIONS (5)
  - Colitis ulcerative [Unknown]
  - Pulmonary embolism [Unknown]
  - Frequent bowel movements [Not Recovered/Not Resolved]
  - Viral infection [Unknown]
  - Off label use [Unknown]

NARRATIVE: CASE EVENT DATE: 20250711
